FAERS Safety Report 6982671-9 (Version None)
Quarter: 2010Q3

REPORT INFORMATION
  Report Type: 
  Country: None (occurrence: None)
  Receive Date: 20100909
  Receipt Date: 20100830
  Transmission Date: 20110219
  Serious: Yes (Other)
  Sender: FDA-Public Use
  Company Number: 10-001273

PATIENT
  Age: 38 Year
  Sex: Female

DRUGS (1)
  1. FEMCON FE (NORETHINDRONE, ETHINYL ESTRADIOL) CHEWABLE [Suspect]
     Indication: MENORRHAGIA
     Dosage: 0.4 MG/35 MCG, QD, ORAL
     Route: 048
     Dates: start: 20100101

REACTIONS (2)
  - HAEMORRHAGE [None]
  - OVARIAN NEOPLASM [None]
